FAERS Safety Report 4617771-1 (Version None)
Quarter: 2005Q1

REPORT INFORMATION
  Report Type: 
  Country: None (occurrence: None)
  Receive Date: 20050324
  Receipt Date: 20050310
  Transmission Date: 20050727
  Serious: Yes (Other)
  Sender: FDA-Public Use
  Company Number: A0549126B

PATIENT
  Age: 74 Year
  Sex: Female
  Weight: 61.4 kg

DRUGS (26)
  1. CITRUCEL CLEAR MIX [Suspect]
     Indication: DIARRHOEA
     Route: 048
     Dates: start: 20030101
  2. CITRUCEL CAPLETS [Suspect]
     Indication: DIARRHOEA
     Route: 048
     Dates: start: 20040101
  3. BEANO TABLETS [Concomitant]
     Indication: CROHN'S DISEASE
     Route: 048
  4. ASACOL [Concomitant]
     Dosage: 400MG SIX TIMES PER DAY
  5. CHROMAGEN [Concomitant]
  6. NEXIUM [Concomitant]
  7. LISINOPRIL [Concomitant]
     Dosage: 20MG PER DAY
  8. NORVASC [Concomitant]
     Dosage: 10MG PER DAY
  9. LEVOXYL [Concomitant]
     Dosage: 75MCG PER DAY
  10. NEURONTIN [Concomitant]
     Dosage: 100MG PER DAY
  11. VIOXX [Concomitant]
  12. ALBUTEROL [Concomitant]
  13. FOSAMAX [Concomitant]
     Dosage: 70MG WEEKLY
  14. VITAMIN B-12 [Concomitant]
     Dosage: 250MG PER DAY
  15. ASPIRIN [Concomitant]
  16. MULTIVITAMIN [Concomitant]
  17. COSOPT [Concomitant]
  18. ALPHAGAN [Concomitant]
  19. XALATAN [Concomitant]
  20. ALPRAZOLAM [Concomitant]
     Dosage: .25MG AS REQUIRED
  21. VITAMIN B12 INJECTION [Concomitant]
  22. TYLENOL W/ CODEINE [Concomitant]
  23. DARVOCET [Concomitant]
  24. BEXTRA [Concomitant]
     Dates: start: 20040101
  25. NIASPAN [Concomitant]
     Dates: start: 20040101
  26. LEVOTHYROX [Concomitant]

REACTIONS (8)
  - ARTHRALGIA [None]
  - ASTHENIA [None]
  - DIARRHOEA [None]
  - DIFFICULTY IN WALKING [None]
  - FAECAL INCONTINENCE [None]
  - FAECES HARD [None]
  - SPINAL COLUMN STENOSIS [None]
  - WEIGHT DECREASED [None]
